FAERS Safety Report 8533522-2 (Version None)
Quarter: 2012Q3

REPORT INFORMATION
  Report Type: 
  Country: None (occurrence: None)
  Receive Date: 20120724
  Receipt Date: 20120713
  Transmission Date: 20120928
  Serious: Yes (Other)
  Sender: FDA-Public Use
  Company Number: JP-VERTEX PHARMACEUTICALS INC.-AE-2012-008934

PATIENT
  Age: 55 Year
  Sex: Male

DRUGS (8)
  1. JANUVIA [Concomitant]
     Route: 048
     Dates: start: 20120507
  2. RIBAVIRIN [Concomitant]
     Route: 048
     Dates: start: 20120409, end: 20120513
  3. PEGINTERFERON ALFA-2B [Concomitant]
     Route: 058
     Dates: start: 20120409, end: 20120611
  4. RIBAVIRIN [Concomitant]
     Route: 048
     Dates: start: 20120528
  5. PEGINTERFERON ALFA-2B [Concomitant]
     Route: 058
     Dates: start: 20120618
  6. RIBAVIRIN [Concomitant]
     Route: 048
     Dates: start: 20120514
  7. TELAVIC (TELAPREVIR) [Suspect]
     Indication: HEPATITIS C
     Route: 048
     Dates: start: 20120409, end: 20120624
  8. TELAVIC (TELAPREVIR) [Suspect]
     Route: 048
     Dates: start: 20120625

REACTIONS (1)
  - RASH [None]
